FAERS Safety Report 7252529-9 (Version None)
Quarter: 2011Q1

REPORT INFORMATION
  Report Type: 
  Country: None (occurrence: None)
  Receive Date: 20110129
  Receipt Date: 20100304
  Transmission Date: 20110831
  Serious: Yes (Other)
  Sender: FDA-Public Use
  Company Number: US-ABBOTT-09P-163-0591870-00

PATIENT
  Sex: Female
  Weight: 60.836 kg

DRUGS (4)
  1. PREDNISONE [Concomitant]
     Indication: PRODUCT USED FOR UNKNOWN INDICATION
     Dosage: TAPER
     Route: 048
     Dates: end: 20090801
  2. AZATHIOPRINE [Concomitant]
     Indication: COLITIS ULCERATIVE
     Route: 048
  3. HUMIRA [Suspect]
     Indication: COLITIS ULCERATIVE
     Dates: start: 20090721, end: 20100301
  4. ASACOL [Concomitant]
     Indication: COLITIS ULCERATIVE

REACTIONS (10)
  - LUPUS-LIKE SYNDROME [None]
  - ARTHRALGIA [None]
  - HEADACHE [None]
  - GAIT DISTURBANCE [None]
  - ABDOMINAL PAIN [None]
  - SKIN EXFOLIATION [None]
  - FATIGUE [None]
  - DRY SKIN [None]
  - RASH [None]
  - BREAST MASS [None]
